FAERS Safety Report 4568456-1 (Version None)
Quarter: 2005Q1

REPORT INFORMATION
  Report Type: 
  Country: None (occurrence: None)
  Receive Date: 20050131
  Receipt Date: 20050119
  Transmission Date: 20050727
  Serious: Yes (Death)
  Sender: FDA-Public Use
  Company Number: 02100-JPN-05-0036

PATIENT
  Age: 79 Year
  Sex: Male

DRUGS (4)
  1. CILOSTAZOL [Suspect]
     Indication: CEREBRAL INFARCTION
     Dosage: 200 MG
     Route: 048
     Dates: start: 20040318, end: 20041128
  2. ASPIRIN DIALUMINATE [Concomitant]
  3. CARVEDILOL [Concomitant]
  4. LOSARTAN POTASSIUM [Concomitant]

REACTIONS (3)
  - CEREBRAL INFARCTION [None]
  - INTRAVENTRICULAR HAEMORRHAGE [None]
  - MYOCARDIAL INFARCTION [None]
